FAERS Safety Report 7995827-3 (Version None)
Quarter: 2011Q4

REPORT INFORMATION
  Report Type: 
  Country: None (occurrence: None)
  Receive Date: 20111220
  Receipt Date: 20111215
  Transmission Date: 20120403
  Serious: Yes (Death)
  Sender: FDA-Public Use
  Company Number: US-ABBOTT-11P-163-0872938-00

PATIENT
  Sex: Male
  Weight: 109.41 kg

DRUGS (5)
  1. VICODIN [Concomitant]
     Indication: CANCER PAIN
     Dosage: 2-10/500 TABS Q6 HRS PRN
     Dates: start: 20110624, end: 20111105
  2. OXYCONTIN [Concomitant]
     Indication: CANCER PAIN
     Dates: start: 20111017, end: 20111105
  3. LUPRON DEPOT [Suspect]
     Indication: PROSTATE CANCER METASTATIC
     Dates: start: 20061201, end: 20111017
  4. CASODEX [Concomitant]
     Indication: PROSTATE CANCER
     Dosage: 50 MG DAILY
     Dates: start: 20110616, end: 20111105
  5. ZOMETA [Concomitant]
     Indication: PRODUCT USED FOR UNKNOWN INDICATION

REACTIONS (1)
  - PROSTATE CANCER METASTATIC [None]
